FAERS Safety Report 5140624-X (Version None)
Quarter: 2006Q4

REPORT INFORMATION
  Report Type: 
  Country: None (occurrence: None)
  Receive Date: 20061019
  Receipt Date: 20061005
  Transmission Date: 20070319
  Serious: Yes (Death, Hospitalization)
  Sender: FDA-Public Use
  Company Number: THYM-11093

PATIENT
  Age: 48 Year
  Sex: Female
  Weight: 54 kg

DRUGS (6)
  1. THYMOGLOBULIN [Suspect]
     Indication: LIVER TRANSPLANT
     Dosage: 1.5 MG/KG QD IV
     Route: 042
     Dates: start: 20050707
  2. OMEPRAZOLE [Concomitant]
  3. HYPNOVEL [Concomitant]
  4. PROGRAF [Concomitant]
  5. SUFENTA [Concomitant]
  6. METHYLPREDNISOLONE [Concomitant]

REACTIONS (7)
  - ATELECTASIS [None]
  - DISEASE RECURRENCE [None]
  - HEPATITIS C [None]
  - HEPATOPULMONARY SYNDROME [None]
  - LIVER TRANSPLANT REJECTION [None]
  - MULTI-ORGAN FAILURE [None]
  - RESPIRATORY FAILURE [None]
